FAERS Safety Report 10547640 (Version 1)
Quarter: 2014Q4

REPORT INFORMATION
  Report Type: Spontaneous
  Country: US (occurrence: None)
  Receive Date: 20141010
  Receipt Date: 20141010
  Transmission Date: 20150529
  Serious: Yes (Other)
  Sender: FDA-Public Use
  Company Number: 163-POMAL-14061722

PATIENT
  Age: 78 Year
  Sex: Female
  Weight: 99.34 kg

DRUGS (16)
  1. FOLIC ACID. [Concomitant]
     Active Substance: FOLIC ACID
  2. FUROSEMIDE. [Concomitant]
     Active Substance: FUROSEMIDE
  3. LEVOTHYROXINE [Concomitant]
     Active Substance: LEVOTHYROXINE
  4. VITAMIN C [Concomitant]
     Active Substance: ASCORBIC ACID
  5. VITAMIN B-12 ( CYANOCOBALAMIN) [Concomitant]
  6. ENALAPRIL MALEATE. [Concomitant]
     Active Substance: ENALAPRIL MALEATE
  7. TRIMETHOBENZAMIDE [Concomitant]
     Active Substance: TRIMETHOBENZAMIDE
  8. ZOMETA ( ZOLEDRONIC ACID) [Concomitant]
  9. ATIVAN ( LORAZEPAM) [Concomitant]
  10. ASPIRINE ( ACETYLSALICYLIC ACID) [Concomitant]
  11. HYDROCODONE/ACETAMINOPHEN ( REMEDEINE) [Concomitant]
  12. COMPLETE ( B COMPLETE) [Concomitant]
  13. CIMETIDINE [Concomitant]
     Active Substance: CIMETIDINE
  14. GABAPENTIN. [Concomitant]
     Active Substance: GABAPENTIN
  15. POMALYST [Suspect]
     Active Substance: POMALIDOMIDE
     Indication: PLASMA CELL MYELOMA
     Dosage: 4 MG, 1 IN 1 D, PO
     Route: 048
     Dates: start: 201309
  16. MAGNESIUM [Concomitant]
     Active Substance: MAGNESIUM

REACTIONS (5)
  - Medication error [None]
  - Neutrophil count decreased [None]
  - White blood cell count decreased [None]
  - Fatigue [None]
  - Platelet count decreased [None]

NARRATIVE: CASE EVENT DATE: 2014
